FAERS Safety Report 9912025 (Version 5)
Quarter: 2015Q2

REPORT INFORMATION
  Report Type: Report from Study
  Country: FR (occurrence: FR)
  Receive Date: 20140219
  Receipt Date: 20150414
  Transmission Date: 20150821
  Serious: Yes (Hospitalization, Other)
  Sender: FDA-Public Use
  Company Number: FR-GILEAD-2013-0085427

PATIENT
  Age: 54 Year
  Sex: Male
  Weight: 58 kg

DRUGS (13)
  1. RIBAVIRIN. [Suspect]
     Active Substance: RIBAVIRIN
     Indication: HEPATITIS C
     Dosage: 600 MG, QD
     Route: 048
     Dates: start: 20130730, end: 20130925
  2. AMLOR [Concomitant]
     Active Substance: AMLODIPINE BESYLATE
     Indication: HYPERTENSION
     Dosage: UNK
     Dates: start: 20130912, end: 20130925
  3. ESOMEPRAZOLE [Concomitant]
     Active Substance: ESOMEPRAZOLE
     Indication: OESOPHAGITIS
     Dosage: UNK
     Dates: start: 20130417, end: 20130925
  4. TARDYFERON [Concomitant]
     Active Substance: FERROUS SULFATE\FOLIC ACID
     Indication: ANAEMIA
     Dosage: UNK
     Dates: start: 20130813, end: 20130925
  5. SOFOSBUVIR [Suspect]
     Active Substance: SOFOSBUVIR
     Indication: HEPATITIS C
     Dosage: 1 DF, QD
     Route: 048
     Dates: start: 20130731, end: 20130925
  6. SOFOSBUVIR [Suspect]
     Active Substance: SOFOSBUVIR
     Dosage: 200 MG, QD
     Route: 048
     Dates: start: 20130524, end: 20130614
  7. SOFOSBUVIR [Suspect]
     Active Substance: SOFOSBUVIR
     Dosage: 200 MG, QD
     Route: 048
     Dates: start: 201306, end: 20130621
  8. RIBAVIRIN. [Suspect]
     Active Substance: RIBAVIRIN
     Dosage: 200 MG, BID
     Route: 048
     Dates: start: 20130617, end: 20130621
  9. METRONIDAZOLE. [Suspect]
     Active Substance: METRONIDAZOLE
     Indication: TOOTH ABSCESS
     Dosage: UNK
     Route: 065
     Dates: start: 20130917, end: 20130919
  10. RIBAVIRIN. [Suspect]
     Active Substance: RIBAVIRIN
     Dosage: UNK
     Route: 048
     Dates: start: 20130524, end: 20130614
  11. RIBAVIRIN. [Suspect]
     Active Substance: RIBAVIRIN
     Dosage: 200 MG, BID
     Route: 048
     Dates: start: 20130801
  12. SPIRAMYCIN [Suspect]
     Active Substance: SPIRAMYCIN
     Indication: TOOTH ABSCESS
     Dosage: UNK
     Route: 065
     Dates: start: 20130917, end: 20130919
  13. NEORAL [Interacting]
     Active Substance: CYCLOSPORINE
     Indication: PROPHYLAXIS
     Dosage: UNK
     Route: 065

REACTIONS (2)
  - Bone marrow failure [Recovered/Resolved]
  - Pancytopenia [Not Recovered/Not Resolved]

NARRATIVE: CASE EVENT DATE: 20130923
